FAERS Safety Report 13473735 (Version 18)
Quarter: 2022Q2

REPORT INFORMATION
  Report Type: Other
  Country: GB (occurrence: GB)
  Receive Date: 20170424
  Receipt Date: 20220404
  Transmission Date: 20220721
  Serious: Yes (Other)
  Sender: FDA-Public Use
  Company Number: None

PATIENT
  Age: 75 Year
  Sex: Female

DRUGS (34)
  1. QUETIAPINE [Suspect]
     Active Substance: QUETIAPINE
     Indication: Product used for unknown indication
     Dosage: 1 DOSAGE FORM ( EVERY 2 WEEKS)
     Route: 048
  2. LANSOPRAZOLE [Suspect]
     Active Substance: LANSOPRAZOLE
     Indication: Product used for unknown indication
     Dosage: 1 DOSAGE FORM ( EVERY 2 WEEK)
     Route: 065
  3. LANSOPRAZOLE [Suspect]
     Active Substance: LANSOPRAZOLE
     Dosage: UNK
     Route: 065
  4. ROPINIROLE [Suspect]
     Active Substance: ROPINIROLE
     Indication: Product used for unknown indication
     Dosage: 01 DOSAGE FORM, EVERY 2 WEEK
     Route: 065
  5. ROPINIROLE [Suspect]
     Active Substance: ROPINIROLE
     Dosage: UNK
     Route: 065
  6. BISOPROLOL [Suspect]
     Active Substance: BISOPROLOL
     Indication: Product used for unknown indication
     Dosage: UNK (2 WEEKS)
     Route: 065
  7. BISOPROLOL [Suspect]
     Active Substance: BISOPROLOL
     Dosage: UNK
     Route: 065
  8. BISOPROLOL [Suspect]
     Active Substance: BISOPROLOL
     Dosage: UNK
     Route: 065
  9. BISOPROLOL [Suspect]
     Active Substance: BISOPROLOL
     Dosage: UNK (FILM COATED TABLET)
     Route: 065
  10. CEREZYME [Suspect]
     Active Substance: IMIGLUCERASE
     Indication: Product used for unknown indication
     Dosage: 800 IU, POWDER FOR SOLUTION FOR INFUSION, FORTNIGHTLY
     Route: 041
     Dates: end: 20170315
  11. CEREZYME [Suspect]
     Active Substance: IMIGLUCERASE
     Dosage: 800 IU, FORTNIGHTLY
     Route: 041
     Dates: end: 20170329
  12. CEREZYME [Suspect]
     Active Substance: IMIGLUCERASE
     Dosage: 800 IU, 2 ONCE A WEEK
     Route: 041
     Dates: start: 20170315, end: 20170329
  13. CEREZYME [Suspect]
     Active Substance: IMIGLUCERASE
     Dosage: 800 IU, 2 ONCE A WEEK (POWDER FOR SOLUTION FOR INFUSION/200 )
     Route: 041
     Dates: end: 20170329
  14. CEREZYME [Suspect]
     Active Substance: IMIGLUCERASE
     Dosage: 800 IU, 2 ONCE A WEEK (POWDER FOR SOLUTION FOR INFUSION/200 )
     Route: 041
     Dates: end: 20170315
  15. CEREZYME [Suspect]
     Active Substance: IMIGLUCERASE
     Dosage: 800 IU, 2 ONCE A WEEK (POWDER FOR SOLUTION FOR INFUSION/200 )
     Route: 041
     Dates: end: 20210315
  16. CEREZYME [Suspect]
     Active Substance: IMIGLUCERASE
     Dosage: 800 IU, 2 ONCE A WEEK (POWDER FOR SOLUTION FOR INFUSION/200 )
     Route: 041
     Dates: end: 20210329
  17. CEREZYME [Suspect]
     Active Substance: IMIGLUCERASE
     Dosage: UNK
     Route: 041
     Dates: end: 20170329
  18. BENSERAZIDE HYDROCHLORIDE\LEVODOPA [Suspect]
     Active Substance: BENSERAZIDE HYDROCHLORIDE\LEVODOPA
     Indication: Product used for unknown indication
     Dosage: 01 DOSAGE FORM, EVERY 2 WEEKS
     Route: 065
  19. BENSERAZIDE HYDROCHLORIDE\LEVODOPA [Suspect]
     Active Substance: BENSERAZIDE HYDROCHLORIDE\LEVODOPA
     Dosage: UNK
     Route: 065
  20. CITALOPRAM [Suspect]
     Active Substance: CITALOPRAM HYDROBROMIDE
     Indication: Product used for unknown indication
     Dosage: 1 DOSAGE FORM, (INTERVAL: 2 WEEK)
     Route: 065
  21. CYCLIZINE [Suspect]
     Active Substance: CYCLIZINE
     Indication: Product used for unknown indication
     Dosage: 1 UNK, EVERY 2 WEEK
     Route: 065
     Dates: start: 20170315
  22. CYCLIZINE [Suspect]
     Active Substance: CYCLIZINE
     Dosage: UNK
     Route: 065
     Dates: start: 20170329
  23. CYCLIZINE [Suspect]
     Active Substance: CYCLIZINE
     Dosage: 1 UNK, EVERY 2 WEEK
     Route: 065
  24. DOMPERIDONE [Suspect]
     Active Substance: DOMPERIDONE
     Indication: Product used for unknown indication
     Dosage: 01 DOSAGE FORM, EVERY 2 WEEKS (SUSPENSION FOR INJECTION)
     Route: 065
     Dates: end: 20170329
  25. DOMPERIDONE [Suspect]
     Active Substance: DOMPERIDONE
     Dosage: UNK (SUSPENSION FOR INJECTION)
     Route: 065
     Dates: end: 20170329
  26. DOMPERIDONE [Suspect]
     Active Substance: DOMPERIDONE
     Dosage: UNK
     Route: 065
     Dates: end: 20210329
  27. LACTULOSE [Suspect]
     Active Substance: LACTULOSE
     Indication: Product used for unknown indication
     Dosage: UNK (2 WEEKS)
     Route: 065
     Dates: end: 20170329
  28. LACTULOSE [Suspect]
     Active Substance: LACTULOSE
     Dosage: UNK
     Route: 065
  29. RIVASTIGMINE [Suspect]
     Active Substance: RIVASTIGMINE
     Indication: Product used for unknown indication
     Dosage: 1 UNK, EVERY 2 WEEK
     Route: 065
  30. RIVASTIGMINE [Suspect]
     Active Substance: RIVASTIGMINE
     Dosage: 1 DOSAGE FORM (EVERY 2 WEEK)
     Route: 065
  31. RIVASTIGMINE [Suspect]
     Active Substance: RIVASTIGMINE
     Dosage: (TRANSDERMAL PATCH)
     Route: 065
  32. SENNA [Suspect]
     Active Substance: SENNA LEAF\SENNOSIDES\SENNOSIDES A AND B
     Indication: Product used for unknown indication
     Dosage: 1 DOSAGE FORM (EVERY 2 WEEKS)
     Route: 065
  33. SENNA [Suspect]
     Active Substance: SENNA LEAF\SENNOSIDES\SENNOSIDES A AND B
     Dosage: UNK
     Route: 065
  34. BENSERAZIDE HYDROCHLORIDE\LEVODOPA [Concomitant]
     Active Substance: BENSERAZIDE HYDROCHLORIDE\LEVODOPA
     Indication: Product used for unknown indication
     Dosage: UNK
     Route: 065

REACTIONS (2)
  - Parkinson^s disease [Unknown]
  - Dizziness [Unknown]
